FAERS Safety Report 18382750 (Version 2)
Quarter: 2020Q4

REPORT INFORMATION
  Report Type: Spontaneous
  Country: FI (occurrence: FI)
  Receive Date: 20201014
  Receipt Date: 20201103
  Transmission Date: 20210114
  Serious: Yes (Other)
  Sender: FDA-Public Use
  Company Number: NVSC2020FI269901

PATIENT
  Sex: Female

DRUGS (4)
  1. ESCITALOPRAM ORION [Concomitant]
     Active Substance: ESCITALOPRAM OXALATE
     Indication: DEPRESSION
     Dosage: 10 MG
     Route: 065
     Dates: start: 2017
  2. THYROXIN [Concomitant]
     Active Substance: LEVOTHYROXINE
     Indication: HYPOTHYROIDISM
     Dosage: 100 UG
     Route: 065
     Dates: start: 2009
  3. FLORINEF ACETATE [Concomitant]
     Active Substance: FLUDROCORTISONE ACETATE
     Indication: ADDISON^S DISEASE
     Dosage: UNK, QD (0,1 MG, AT 1/2 TABL/DAILY)
     Route: 065
     Dates: start: 2002
  4. HYDROCORTISONE. [Suspect]
     Active Substance: HYDROCORTISONE
     Indication: ADDISON^S DISEASE
     Dosage: 10 MG (STRENGTH 20 MG: DOSING 10+5+5MG/DAILY) (FORMULATION: TABLET)
     Route: 048
     Dates: start: 2001

REACTIONS (8)
  - Product complaint [Unknown]
  - Product quality issue [Unknown]
  - Product physical issue [Unknown]
  - Extra dose administered [Unknown]
  - Drug ineffective [Unknown]
  - Adrenocortical insufficiency acute [Unknown]
  - Gastritis [Not Recovered/Not Resolved]
  - Suspected product quality issue [Unknown]
